FAERS Safety Report 20776555 (Version 1)
Quarter: 2022Q2

REPORT INFORMATION
  Report Type: Spontaneous
  Country: CN (occurrence: CN)
  Receive Date: 20220502
  Receipt Date: 20220502
  Transmission Date: 20220721
  Serious: Yes (Hospitalization)
  Sender: FDA-Public Use
  Company Number: CN-Eisai Medical Research-EC-2022-113730

PATIENT
  Age: 59 Year
  Sex: Male
  Weight: 75 kg

DRUGS (3)
  1. LENVIMA [Suspect]
     Active Substance: LENVATINIB
     Indication: Renal cancer
     Dosage: DOSE AND FREQUENCY UNKNOWN
     Route: 048
     Dates: end: 20220221
  2. LENVIMA [Suspect]
     Active Substance: LENVATINIB
     Route: 048
     Dates: start: 20220222, end: 20220415
  3. BEVACIZUMAB [Suspect]
     Active Substance: BEVACIZUMAB
     Indication: Renal cancer
     Route: 041
     Dates: start: 20220314, end: 20220314

REACTIONS (1)
  - Gallbladder rupture [Unknown]

NARRATIVE: CASE EVENT DATE: 20220415
